FAERS Safety Report 13066861 (Version 1)
Quarter: 2016Q4

REPORT INFORMATION
  Report Type: Spontaneous
  Country: DE (occurrence: DE)
  Receive Date: 20161227
  Receipt Date: 20161227
  Transmission Date: 20170207
  Serious: Yes (Congenital Anomaly, Other)
  Sender: FDA-Public Use
  Company Number: GXKR2016DE005907

PATIENT

DRUGS (23)
  1. AMPHO MORONAL [Concomitant]
     Active Substance: AMPHOTERICIN B
     Indication: ANTIFUNGAL PROPHYLAXIS
     Dosage: UNTIL WHEN?
     Route: 064
     Dates: start: 20160308, end: 20160317
  2. L-THYROXINE [Concomitant]
     Active Substance: LEVOTHYROXINE
     Indication: HYPOTHYROIDISM
     Dosage: 75 [?G/D ]/ UNTIL THE END OF PREGNANCY?
     Route: 064
     Dates: start: 20151115, end: 20160317
  3. ZOFRAN [Concomitant]
     Active Substance: ONDANSETRON HYDROCHLORIDE
     Indication: PROPHYLAXIS OF NAUSEA AND VOMITING
     Dosage: 24 [MG/D ], EXPOSURE UNKNOWN
     Route: 064
  4. CLEXANE [Concomitant]
     Active Substance: ENOXAPARIN SODIUM
     Indication: THROMBOSIS PROPHYLAXIS
     Dosage: UNKNWON TRIMESTER, TERMINATED BEFORE WEEK 17 4/7
     Route: 064
  5. CYTARABINE. [Suspect]
     Active Substance: CYTARABINE
     Indication: ACUTE PROMYELOCYTIC LEUKAEMIA
     Dosage: 400 [MG/D ]/ TOTAL DOSE 2800 MG
     Route: 064
     Dates: start: 20160308, end: 20160314
  6. NOXAFIL [Suspect]
     Active Substance: POSACONAZOLE
     Indication: ANTIFUNGAL PROPHYLAXIS
     Dosage: 600 [MG/D (200-200-200) ]/ WAS PLANNED FOR MARCH, 23RD. ALTERNATIVELY DISCUSSED DRUG: DIFLUCAN. FROM
     Route: 064
  7. MAGNESIUM [Concomitant]
     Active Substance: MAGNESIUM
     Indication: PROPHYLAXIS OF ABORTION
     Route: 064
     Dates: start: 20160317, end: 20160317
  8. BETAMETHASONE. [Concomitant]
     Active Substance: BETAMETHASONE
     Indication: MATERNAL THERAPY TO ENHANCE FOETAL LUNG MATURITY
     Dosage: UKN, 3RD TRIMESTER
     Route: 064
  9. COTRIM FORTE [Concomitant]
     Active Substance: SULFAMETHOXAZOLE\TRIMETHOPRIM
     Indication: ANTIFUNGAL PROPHYLAXIS
     Dosage: 800 [MG/D (3X/WK) ] / 160 [MG/D (3X/WK) ]
     Route: 064
  10. ROCEPHIN [Concomitant]
     Active Substance: CEFTRIAXONE SODIUM
     Indication: ANTIBIOTIC PROPHYLAXIS
     Dosage: 2000 [MG/D (1-0-0) ]/ UNTIL WHEN?
     Route: 064
     Dates: start: 20160308, end: 20160317
  11. PANTOZOL [Concomitant]
     Active Substance: PANTOPRAZOLE SODIUM
     Indication: GASTRITIS PROPHYLAXIS
     Dosage: 40 [MG/D (1-0-0) ]/ UNTIL WHEN? LATER ORALLY.
     Route: 064
     Dates: start: 20160308, end: 20160317
  12. CIPROFLOXACIN. [Concomitant]
     Active Substance: CIPROFLOXACIN
     Indication: ANTIBIOTIC PROPHYLAXIS
     Dosage: EXPOSURE UNKNOWN, WAS PLANNED IF NEUTROPHILS ARE {500/?L
     Route: 064
  13. ALLOPURINOL. [Suspect]
     Active Substance: ALLOPURINOL
     Indication: ACUTE PROMYELOCYTIC LEUKAEMIA
  14. VOMEX A [Concomitant]
     Active Substance: DIMENHYDRINATE
     Indication: PROPHYLAXIS OF NAUSEA AND VOMITING
     Dosage: UNK, PERHAPS LONGER THERAPY
     Route: 064
     Dates: start: 20160308, end: 20160317
  15. NATRIUMHYDROGENCARBONAT [Concomitant]
     Active Substance: SODIUM BICARBONATE
     Indication: URINE ALKALINISATION THERAPY
     Dosage: URINE PH WAS AIMED TO BE }7.4. UNTIL WHEN??
     Route: 064
     Dates: start: 20160308, end: 20160317
  16. DAUNORUBICIN [Suspect]
     Active Substance: DAUNORUBICIN
     Indication: ACUTE PROMYELOCYTIC LEUKAEMIA
     Dosage: 120 [MG/D (120-0-0) ]/ IN TOTAL  900MG. INDUCTION 16 2/7  - 16 4/7. CONSOLIDATION I: 19.-21.4. CONSO
     Route: 064
     Dates: start: 20160308, end: 20160530
  17. MCP [Concomitant]
     Active Substance: METOCLOPRAMIDE HYDROCHLORIDE
     Indication: PROPHYLAXIS OF NAUSEA AND VOMITING
     Dosage: ON DEMAND, EXPOSURE UNKNOWN
     Route: 064
  18. ALLOPURINOL. [Suspect]
     Active Substance: ALLOPURINOL
     Indication: HYPERURICAEMIA
     Dosage: 300 [MG/D (300-0-0 MG) ]/ FROM? TO ?
     Route: 064
     Dates: start: 20160317, end: 20160317
  19. VESANOID [Suspect]
     Active Substance: TRETINOIN
     Indication: ACUTE PROMYELOCYTIC LEUKAEMIA
     Dosage: 30 MG, 3X DAILY
     Route: 064
     Dates: start: 20160308, end: 20160530
  20. PROGESTAN [Concomitant]
     Active Substance: PROGESTERONE
     Indication: PROPHYLAXIS OF ABORTION
     Dosage: 200 [MG/D ]
     Route: 064
     Dates: start: 20151115, end: 20160317
  21. ACICLOVIR [Concomitant]
     Active Substance: ACYCLOVIR
     Indication: ANTIVIRAL PROPHYLAXIS
     Dosage: 800 [MG/D ]/ UNTIL WHEN?
     Route: 064
     Dates: start: 20160308, end: 20160317
  22. PROGYNOVA [Concomitant]
     Active Substance: ESTRADIOL VALERATE
     Indication: PROPHYLAXIS OF ABORTION
     Dosage: 2 [MG/D ]
     Route: 064
     Dates: start: 20151115, end: 20160317
  23. DIFLUCAN [Suspect]
     Active Substance: FLUCONAZOLE
     Indication: ANTIFUNGAL PROPHYLAXIS
     Dosage: 400 [MG/D (400-0-0 MG) ]/ DISCUSSED AS ALTERNATIVE TO NOXAFIL. PLANNED FROM MARCH, 18TH.
     Route: 064

REACTIONS (5)
  - Thrombocytosis [Recovered/Resolved]
  - Bone disorder [Not Recovered/Not Resolved]
  - Patent ductus arteriosus [Recovered/Resolved]
  - Small for dates baby [Not Recovered/Not Resolved]
  - Premature baby [Recovering/Resolving]

NARRATIVE: CASE EVENT DATE: 20160630
